FAERS Safety Report 13003919 (Version 3)
Quarter: 2017Q1

REPORT INFORMATION
  Report Type: Report from Study
  Country: US (occurrence: US)
  Receive Date: 20161206
  Receipt Date: 20170328
  Transmission Date: 20170428
  Serious: Yes (Hospitalization, Other)
  Sender: FDA-Public Use
  Company Number: US-GILEAD-2016-0246711

PATIENT
  Age: 81 Year
  Sex: Female

DRUGS (2)
  1. IDELALISIB [Suspect]
     Active Substance: IDELALISIB
     Indication: NON-HODGKIN^S LYMPHOMA
     Dosage: 150 MG, BID
     Route: 048
     Dates: start: 20150911
  2. IDELALISIB [Suspect]
     Active Substance: IDELALISIB
     Dosage: 100 MG, BID
     Route: 048
     Dates: start: 20160201

REACTIONS (8)
  - Fatigue [Unknown]
  - Dyspnoea [Unknown]
  - B-cell lymphoma [Unknown]
  - Constipation [Recovered/Resolved]
  - Abdominal pain [Recovered/Resolved]
  - Anxiety [Unknown]
  - Back pain [Unknown]
  - Hypertension [Unknown]

NARRATIVE: CASE EVENT DATE: 201611
